FAERS Safety Report 6342140-6 (Version None)
Quarter: 2009Q3

REPORT INFORMATION
  Report Type: 
  Country: None (occurrence: None)
  Receive Date: 20090903
  Receipt Date: 20090903
  Transmission Date: 20100115
  Serious: No
  Sender: FDA-Public Use
  Company Number: None

PATIENT

DRUGS (4)
  1. VIGAMOX [Suspect]
     Dosage: 1 DROP QID
     Dates: start: 20090724
  2. VIGAMOX [Suspect]
     Dosage: 1 DROP QID
     Dates: start: 20090725
  3. VIGAMOX [Suspect]
     Dosage: 1 DROP QID
     Dates: start: 20090726
  4. VIGAMOX [Suspect]
     Dosage: 1 DROP QID
     Dates: start: 20090730

REACTIONS (4)
  - BURNING SENSATION [None]
  - ERYTHEMA [None]
  - PAIN [None]
  - UNEVALUABLE EVENT [None]
